FAERS Safety Report 9689292 (Version 2)
Quarter: 2013Q4

REPORT INFORMATION
  Report Type: Spontaneous
  Country: US (occurrence: US)
  Receive Date: 20131114
  Receipt Date: 20131114
  Transmission Date: 20140711
  Serious: Yes (Other)
  Sender: FDA-Public Use
  Company Number: US-GILEAD-2013-0086497

PATIENT
  Sex: Male
  Weight: 122.45 kg

DRUGS (18)
  1. LETAIRIS [Suspect]
     Indication: PULMONARY HYPERTENSION
     Dosage: 5 MG, QD
     Route: 048
     Dates: start: 20100215, end: 20130820
  2. XOPENEX [Concomitant]
  3. METHYLPREDNISOLONE [Concomitant]
  4. HECTOROL [Concomitant]
  5. PULMICORT [Concomitant]
  6. ALBUTEROL                          /00139501/ [Concomitant]
  7. ISOSORBIDE MONONITRATE [Concomitant]
  8. LACTULOSE [Concomitant]
  9. ALLERCLEAR [Concomitant]
  10. AMBIEN [Concomitant]
  11. AVODART [Concomitant]
  12. FLOMAX                             /01280302/ [Concomitant]
  13. PRILOSEC                           /00661201/ [Concomitant]
  14. TYLENOL ARTHRITIS [Concomitant]
  15. VITA EYES [Concomitant]
  16. FUROSEMIDE [Concomitant]
  17. METOPROLOL [Concomitant]
  18. QUINAPRIL [Concomitant]
     Indication: PULMONARY HYPERTENSION

REACTIONS (1)
  - Diastolic dysfunction [Unknown]
